FAERS Safety Report 25735621 (Version 2)
Quarter: 2025Q3

REPORT INFORMATION
  Report Type: Spontaneous
  Country: EU (occurrence: EU)
  Receive Date: 20250828
  Receipt Date: 20250909
  Transmission Date: 20251020
  Serious: Yes (Other)
  Sender: MYLAN
  Company Number: EU-DSJP-DSE-2018-115341

PATIENT
  Age: 72 Year
  Sex: Female

DRUGS (6)
  1. METOPROLOL [Suspect]
     Active Substance: METOPROLOL
     Indication: Hypertension
  2. OLMESARTAN [Suspect]
     Active Substance: OLMESARTAN
     Indication: Hypertension
  3. OLMESARTAN [Suspect]
     Active Substance: OLMESARTAN
  4. ASPIRIN [Suspect]
     Active Substance: ASPIRIN
     Indication: Product used for unknown indication
  5. HYDROCHLOROTHIAZIDE [Suspect]
     Active Substance: HYDROCHLOROTHIAZIDE
     Indication: Hypertension
  6. AMLODIPINE BESYLATE [Suspect]
     Active Substance: AMLODIPINE BESYLATE
     Indication: Hypertension

REACTIONS (9)
  - Sprue-like enteropathy [Recovering/Resolving]
  - Hypokalaemia [Unknown]
  - Chronic kidney disease [Unknown]
  - Pallor [Unknown]
  - Hypoalbuminaemia [Unknown]
  - Lymphocytic infiltration [Unknown]
  - Enteritis [Unknown]
  - Red blood cell sedimentation rate increased [Unknown]
  - Diverticulum intestinal [Unknown]
